FAERS Safety Report 4766839-8 (Version None)
Quarter: 2005Q3

REPORT INFORMATION
  Report Type: 
  Country: None (occurrence: None)
  Receive Date: 20050912
  Receipt Date: 20050830
  Transmission Date: 20060218
  Serious: Yes (Hospitalization, Other)
  Sender: FDA-Public Use
  Company Number: 2005122605

PATIENT
  Age: 72 Year
  Sex: Female

DRUGS (10)
  1. LIPITOR [Suspect]
     Indication: BLOOD CHOLESTEROL INCREASED
     Dosage: 10 MG (10 MG, 1 IN 1 D), ORAL
     Route: 048
  2. ACETYLSALICYLIC ACID SRT [Concomitant]
  3. COZAAR [Concomitant]
  4. PRILOSEC [Concomitant]
  5. PREDNISONE [Concomitant]
  6. ALBUTEROL [Concomitant]
  7. THEOPHYLLINE [Concomitant]
  8. REGLAN [Concomitant]
  9. LOPRESSOR [Concomitant]
  10. PLAVIX [Concomitant]

REACTIONS (12)
  - ABASIA [None]
  - CEREBROVASCULAR ACCIDENT [None]
  - COMA [None]
  - DIABETES MELLITUS [None]
  - DYSSTASIA [None]
  - EYE DISORDER [None]
  - FALL [None]
  - KIDNEY INFECTION [None]
  - MEMORY IMPAIRMENT [None]
  - THROMBOSIS [None]
  - VISUAL DISTURBANCE [None]
  - WEIGHT DECREASED [None]
